FAERS Safety Report 12596635 (Version 2)
Quarter: 2016Q3

REPORT INFORMATION
  Report Type: Spontaneous
  Country: US (occurrence: US)
  Receive Date: 20160726
  Receipt Date: 20160823
  Transmission Date: 20161109
  Serious: Yes (Death)
  Sender: FDA-Public Use
  Company Number: US-RETROPHIN, INC.-2016RTN00010

PATIENT

DRUGS (1)
  1. CHOLBAM [Suspect]
     Active Substance: CHOLIC ACID

REACTIONS (1)
  - Death [Fatal]

NARRATIVE: CASE EVENT DATE: 201512
